FAERS Safety Report 21905508 (Version 1)
Quarter: 2023Q1

REPORT INFORMATION
  Report Type: Spontaneous
  Country: US (occurrence: None)
  Receive Date: 20230124
  Receipt Date: 20230124
  Transmission Date: 20230417
  Serious: Yes (Hospitalization)
  Sender: FDA-Public Use
  Company Number: None

PATIENT
  Age: 72 Year
  Sex: Male
  Weight: 84.9 kg

DRUGS (3)
  1. VENETOCLAX [Suspect]
     Active Substance: VENETOCLAX
     Indication: Myelodysplastic syndrome
     Dosage: FREQUENCY : DAILY;?
     Route: 048
     Dates: start: 20220914, end: 20221205
  2. VENETOCLAX [Concomitant]
     Active Substance: VENETOCLAX
     Dates: start: 20220914, end: 20221205
  3. INQOVI [Concomitant]
     Active Substance: CEDAZURIDINE\DECITABINE
     Dates: start: 20221121, end: 20221125

REACTIONS (3)
  - Stem cell transplant [None]
  - Febrile neutropenia [None]
  - Bacteraemia [None]

NARRATIVE: CASE EVENT DATE: 20221212
